FAERS Safety Report 4579652-1 (Version None)
Quarter: 2005Q1

REPORT INFORMATION
  Report Type: 
  Country: None (occurrence: None)
  Receive Date: 20050210
  Receipt Date: 20050126
  Transmission Date: 20050727
  Serious: Yes (Death, Hospitalization)
  Sender: FDA-Public Use
  Company Number: 2004AL000778

PATIENT
  Age: 54 Year
  Sex: Male

DRUGS (1)
  1. VERAPAMIL HYDROCHLORIDE [Suspect]
     Dosage: PO
     Route: 048

REACTIONS (10)
  - ALANINE AMINOTRANSFERASE INCREASED [None]
  - ASPARTATE AMINOTRANSFERASE INCREASED [None]
  - BLOOD BILIRUBIN INCREASED [None]
  - BLOOD CREATININE INCREASED [None]
  - BLOOD UREA INCREASED [None]
  - COMPLETED SUICIDE [None]
  - DRUG EFFECT DECREASED [None]
  - HEART RATE DECREASED [None]
  - INTENTIONAL MISUSE [None]
  - OXYGEN SATURATION DECREASED [None]
